FAERS Safety Report 21769684 (Version 2)
Quarter: 2022Q4

REPORT INFORMATION
  Report Type: Report from Study
  Country: US (occurrence: US)
  Receive Date: 20221223
  Receipt Date: 20221223
  Transmission Date: 20230112
  Serious: No
  Sender: FDA-Public Use
  Company Number: US-ABBVIE-4247141

PATIENT
  Sex: Female

DRUGS (1)
  1. VENCLEXTA [Suspect]
     Active Substance: VENETOCLAX
     Indication: Acute myeloid leukaemia
     Dosage: 1 TABLET ON MON, WED, SUNDAY + 2 TABS ON TUES, THURS, SAT FOR 21 DAYS ON, THEN 7 DAYS OFF?FORM ST...
     Route: 048

REACTIONS (1)
  - Off label use [Unknown]
